FAERS Safety Report 23858702 (Version 6)
Quarter: 2024Q2

REPORT INFORMATION
  Report Type: Spontaneous
  Country: DE (occurrence: DE)
  Receive Date: 20240515
  Receipt Date: 20240629
  Transmission Date: 20240716
  Serious: Yes (Other)
  Sender: FDA-Public Use
  Company Number: None

PATIENT
  Age: 46 Year
  Sex: Female
  Weight: 73 kg

DRUGS (50)
  1. CYCLOPHOSPHAMIDE [Suspect]
     Active Substance: CYCLOPHOSPHAMIDE
     Indication: Diffuse large B-cell lymphoma
     Dosage: UNK UNK, TIW,ON 24/APR/2024, PATIENT RECEIVED MOST RECENT DOSE OF CYCLOPHOSPHAMIDE 1350 MG PRIOR TO
     Route: 042
  2. DOXORUBICIN [Suspect]
     Active Substance: DOXORUBICIN
     Indication: Diffuse large B-cell lymphoma
     Dosage: UNK UNK, TIW, ON 24/APR/2024, PATIENT RECEIVED MOST RECENT DOSE OF DOXORUBICIN 45 MG PRIOR TO AE AND
     Route: 042
  3. PREDNISONE [Suspect]
     Active Substance: PREDNISONE
     Indication: Diffuse large B-cell lymphoma
     Dosage: 100 MG, TIW, ON 27/APR/2024, PATIENT RECEIVED MOST RECENT DOSE OF PREDNISONE PRIOR TO AE AND SAE.
     Route: 048
     Dates: start: 20240423
  4. POLATUZUMAB VEDOTIN [Suspect]
     Active Substance: POLATUZUMAB VEDOTIN
     Indication: Diffuse large B-cell lymphoma
     Dosage: 102.2 MG, TIW, ON 24/APR/2024, PATIENT RECEIVED MOST RECENT DOSE OF POLATUZUMAB VEDOTIN 102.2 MG PRI
     Route: 042
     Dates: start: 20240424
  5. RITUXIMAB [Suspect]
     Active Substance: RITUXIMAB
     Indication: Diffuse large B-cell lymphoma
     Dosage: UNK, TIW, ON 23/APR/2024, PATIENT RECEIVED MOST RECENT DOSE OF RITUXIMAB 675 MG PRIOR TO AE AND SAE.
     Route: 042
     Dates: start: 20240423
  6. ACYCLOVIR [Concomitant]
     Active Substance: ACYCLOVIR
     Indication: Product used for unknown indication
     Dosage: 400 MG
     Route: 065
     Dates: start: 20240423
  7. ACYCLOVIR [Concomitant]
     Active Substance: ACYCLOVIR
     Dosage: 400.000MG
     Route: 048
     Dates: start: 20240423
  8. ACYCLOVIR [Concomitant]
     Active Substance: ACYCLOVIR
     Dosage: 400.000MG
     Route: 065
     Dates: start: 20240423
  9. ACYCLOVIR [Concomitant]
     Active Substance: ACYCLOVIR
     Dosage: 400.000MG
     Route: 065
     Dates: start: 20240423
  10. ACYCLOVIR [Concomitant]
     Active Substance: ACYCLOVIR
     Dosage: 400.000MG
     Route: 065
     Dates: start: 20240423
  11. ACYCLOVIR [Concomitant]
     Active Substance: ACYCLOVIR
     Dosage: 400.000MG
     Route: 065
     Dates: start: 20240423
  12. ACYCLOVIR [Concomitant]
     Active Substance: ACYCLOVIR
     Dosage: 400.000MG
     Route: 065
     Dates: start: 20240423
  13. ALLOPURINOL [Concomitant]
     Active Substance: ALLOPURINOL
     Indication: Product used for unknown indication
     Dosage: 300 MG, QD
     Route: 065
  14. ALLOPURINOL [Concomitant]
     Active Substance: ALLOPURINOL
     Dosage: 300.000MG QD
     Route: 065
  15. ALLOPURINOL [Concomitant]
     Active Substance: ALLOPURINOL
     Dosage: 300.000MG QD
     Route: 065
  16. ALLOPURINOL [Concomitant]
     Active Substance: ALLOPURINOL
     Dosage: 300.000MG QD
     Route: 065
  17. ALLOPURINOL [Concomitant]
     Active Substance: ALLOPURINOL
     Dosage: 300.000MG QD
     Route: 065
  18. ALLOPURINOL [Concomitant]
     Active Substance: ALLOPURINOL
     Dosage: 300.000MG QD
     Route: 065
  19. ALLOPURINOL [Concomitant]
     Active Substance: ALLOPURINOL
     Dosage: 300.000MG QD
     Route: 065
  20. BISOPROLOL [Concomitant]
     Active Substance: BISOPROLOL\BISOPROLOL FUMARATE
     Indication: Hypertension
     Dosage: 2.500MG QD
     Route: 048
  21. BRIMONIDINA [Concomitant]
     Indication: Product used for unknown indication
     Route: 047
  22. Cimetidin [Concomitant]
     Indication: Product used for unknown indication
     Dosage: 200 MG
     Route: 065
     Dates: start: 20240423, end: 20240423
  23. Cimetidin [Concomitant]
     Dosage: 200.000MG
     Route: 042
     Dates: start: 20240423, end: 20240423
  24. DOXORUBICIN HYDROCHLORIDE [Concomitant]
     Active Substance: DOXORUBICIN HYDROCHLORIDE
     Indication: Pyrexia
     Dosage: 4.000G QD
     Route: 065
     Dates: start: 20240530
  25. FILGRASTIM [Concomitant]
     Active Substance: FILGRASTIM
     Dosage: QD
     Route: 058
     Dates: start: 20240508, end: 20240509
  26. FILGRASTIM [Concomitant]
     Active Substance: FILGRASTIM
     Indication: Leukopenia
     Dosage: QD
     Route: 065
     Dates: start: 20240508, end: 20240509
  27. FILGRASTIM [Concomitant]
     Active Substance: FILGRASTIM
     Dosage: QD
     Route: 065
     Dates: start: 20240508, end: 20240509
  28. FILGRASTIM [Concomitant]
     Active Substance: FILGRASTIM
     Dosage: QD
     Route: 065
     Dates: start: 20240508, end: 20240509
  29. FOLIC ACID [Concomitant]
     Active Substance: FOLIC ACID
     Indication: Folate deficiency
     Dosage: 5.000MG
     Route: 048
     Dates: start: 20240430
  30. INNOHEP [Concomitant]
     Active Substance: TINZAPARIN SODIUM
     Indication: Product used for unknown indication
     Dosage: 4500.000IU QD
     Route: 058
     Dates: start: 20240507, end: 20240509
  31. GRANISETRON HYDROCHLORIDE [Concomitant]
     Active Substance: GRANISETRON HYDROCHLORIDE
     Indication: Product used for unknown indication
     Dosage: 1 MG
     Route: 065
     Dates: start: 20240424, end: 20240424
  32. GRANISETRON HYDROCHLORIDE [Concomitant]
     Active Substance: GRANISETRON HYDROCHLORIDE
     Dosage: 1.000MG
     Route: 042
     Dates: start: 20240424, end: 20240424
  33. GRANISETRON HYDROCHLORIDE [Concomitant]
     Active Substance: GRANISETRON HYDROCHLORIDE
     Dosage: 1.000MG
     Route: 065
     Dates: start: 20240424, end: 20240424
  34. GRANISETRON HYDROCHLORIDE [Concomitant]
     Active Substance: GRANISETRON HYDROCHLORIDE
     Dosage: 1.000MG
     Route: 065
     Dates: start: 20240424, end: 20240424
  35. GRANISETRON HYDROCHLORIDE [Concomitant]
     Active Substance: GRANISETRON HYDROCHLORIDE
     Dosage: 1.000MG
     Route: 065
     Dates: start: 20240424, end: 20240424
  36. GRANISETRON HYDROCHLORIDE [Concomitant]
     Active Substance: GRANISETRON HYDROCHLORIDE
     Dosage: 1.000MG
     Route: 065
     Dates: start: 20240424, end: 20240424
  37. GRANISETRON HYDROCHLORIDE [Concomitant]
     Active Substance: GRANISETRON HYDROCHLORIDE
     Dosage: 1.000MG
     Route: 065
     Dates: start: 20240424, end: 20240424
  38. ACETAMINOPHEN [Concomitant]
     Active Substance: ACETAMINOPHEN
     Indication: Product used for unknown indication
     Dosage: 1 G
     Route: 065
     Dates: start: 20240423, end: 20240423
  39. ACETAMINOPHEN [Concomitant]
     Active Substance: ACETAMINOPHEN
     Dosage: 1.000G
     Route: 065
     Dates: start: 20240423, end: 20240423
  40. ACETAMINOPHEN [Concomitant]
     Active Substance: ACETAMINOPHEN
     Dosage: 1.000G
     Route: 065
     Dates: start: 20240423, end: 20240423
  41. ACETAMINOPHEN [Concomitant]
     Active Substance: ACETAMINOPHEN
     Dosage: 1.000G
     Route: 065
     Dates: start: 20240423, end: 20240423
  42. ACETAMINOPHEN [Concomitant]
     Active Substance: ACETAMINOPHEN
     Dosage: 1.000G
     Route: 065
     Dates: start: 20240423, end: 20240423
  43. ACETAMINOPHEN [Concomitant]
     Active Substance: ACETAMINOPHEN
     Dosage: 1.000G
     Route: 065
     Dates: start: 20240423, end: 20240423
  44. ACETAMINOPHEN [Concomitant]
     Active Substance: ACETAMINOPHEN
     Dosage: 1.000G
     Route: 065
     Dates: start: 20240423, end: 20240423
  45. ACETAMINOPHEN [Concomitant]
     Active Substance: ACETAMINOPHEN
     Dosage: 1000.000MG
     Route: 042
     Dates: start: 20240503, end: 20240503
  46. POTASSIUM [Concomitant]
     Active Substance: POTASSIUM
     Indication: Hypokalaemia
     Dosage: QD
     Route: 042
     Dates: start: 20240506, end: 20240509
  47. POTASSIUM [Concomitant]
     Active Substance: POTASSIUM
     Indication: Product used for unknown indication
     Route: 048
     Dates: start: 20240405, end: 20240505
  48. PREDNISOLONE [Concomitant]
     Active Substance: PREDNISOLONE
     Indication: Product used for unknown indication
     Dosage: UNK
     Route: 065
     Dates: start: 20240411, end: 20240415
  49. CLEMASTINE FUMARATE [Concomitant]
     Active Substance: CLEMASTINE FUMARATE
     Indication: Product used for unknown indication
     Dosage: 2 MG
     Route: 065
     Dates: start: 20240423, end: 20240423
  50. CLEMASTINE FUMARATE [Concomitant]
     Active Substance: CLEMASTINE FUMARATE
     Dosage: 2.000MG
     Route: 042
     Dates: start: 20240423, end: 20240423

REACTIONS (1)
  - Febrile neutropenia [Recovered/Resolved]

NARRATIVE: CASE EVENT DATE: 20240503
